FAERS Safety Report 8505512-7 (Version None)
Quarter: 2012Q2

REPORT INFORMATION
  Report Type: 
  Country: None (occurrence: None)
  Receive Date: 20120405
  Receipt Date: 20091001
  Transmission Date: 20120825
  Serious: Yes (Other)
  Sender: FDA-Public Use
  Company Number: PHEH2009US13061

PATIENT
  Sex: Female

DRUGS (1)
  1. RECLAST [Suspect]
     Dosage: 5 MG, ONCEISINGLE, INFUSION

REACTIONS (10)
  - DEHYDRATION [None]
  - CHEST PAIN [None]
  - CONJUNCTIVITIS [None]
  - DIARRHOEA [None]
  - ATRIAL FIBRILLATION [None]
  - MUSCLE SPASMS [None]
  - HEADACHE [None]
  - DIZZINESS [None]
  - BACK PAIN [None]
  - CHILLS [None]
